FAERS Safety Report 16986709 (Version 1)
Quarter: 2019Q4

REPORT INFORMATION
  Report Type: Spontaneous
  Country: US (occurrence: US)
  Receive Date: 20191025
  Receipt Date: 20191025
  Transmission Date: 20200122
  Serious: Yes (Other)
  Sender: FDA-Public Use
  Company Number: None

PATIENT
  Age: 54 Year
  Sex: Female
  Weight: 43.65 kg

DRUGS (2)
  1. ISONIAZID (INH) 300MG X 3 [Suspect]
     Active Substance: ISONIAZID
     Indication: TUBERCULOSIS
     Route: 048
     Dates: start: 20191023, end: 20191023
  2. RIFAPENTINE (RPT) 150MG X 6 [Suspect]
     Active Substance: RIFAPENTINE
     Indication: TUBERCULOSIS
     Route: 048
     Dates: start: 20191023, end: 20191023

REACTIONS (6)
  - Dysphagia [None]
  - Yellow skin [None]
  - Palpitations [None]
  - Dizziness [None]
  - Hypoaesthesia [None]
  - Headache [None]

NARRATIVE: CASE EVENT DATE: 20191023
